FAERS Safety Report 9475666 (Version 1)
Quarter: 2013Q3

REPORT INFORMATION
  Report Type: Spontaneous
  Country: DE (occurrence: DE)
  Receive Date: 20130826
  Receipt Date: 20130826
  Transmission Date: 20140515
  Serious: Yes (Hospitalization, Other)
  Sender: FDA-Public Use
  Company Number: PHHY2013DE091742

PATIENT
  Sex: Male

DRUGS (1)
  1. ACLASTA [Suspect]
     Dosage: 5 MG (EVERY 03 MONTHS)
     Route: 042

REACTIONS (4)
  - Renal pain [Unknown]
  - Abdominal pain [Unknown]
  - Toxicity to various agents [Unknown]
  - Inappropriate schedule of drug administration [Unknown]
